FAERS Safety Report 7721536-1 (Version None)
Quarter: 2011Q3

REPORT INFORMATION
  Report Type: 
  Country: None (occurrence: None)
  Receive Date: 20110825
  Receipt Date: 20110809
  Transmission Date: 20111222
  Serious: Yes (Other)
  Sender: FDA-Public Use
  Company Number: 2011MA011567

PATIENT

DRUGS (3)
  1. BCG (NO PREF. NAME) [Suspect]
  2. RIFAMPIN [Suspect]
  3. BISOPROLOL FUMARATE [Suspect]

REACTIONS (4)
  - DRUG INTERACTION [None]
  - HYPERTENSION [None]
  - ARRHYTHMIA [None]
  - TUBERCULOSIS [None]
